FAERS Safety Report 6489802-8 (Version None)
Quarter: 2009Q4

REPORT INFORMATION
  Report Type: 
  Country: None (occurrence: None)
  Receive Date: 20091211
  Receipt Date: 20091207
  Transmission Date: 20100525
  Serious: Yes (Hospitalization)
  Sender: FDA-Public Use
  Company Number: JP-BIOGENIDEC-2009BI025726

PATIENT
  Age: 38 Year
  Sex: Female

DRUGS (7)
  1. AVONEX [Suspect]
     Indication: RELAPSING-REMITTING MULTIPLE SCLEROSIS
     Route: 030
     Dates: start: 20080828, end: 20080901
  2. AVONEX [Suspect]
     Route: 030
     Dates: start: 20080901
  3. SOLU-MEDROL [Concomitant]
     Indication: MULTIPLE SCLEROSIS RELAPSE
     Route: 030
     Dates: start: 20080626, end: 20080628
  4. SOLU-MEDROL [Concomitant]
     Route: 030
     Dates: start: 20081218, end: 20081220
  5. THYRADIN S [Concomitant]
     Dates: start: 20080925
  6. LOXONIN [Concomitant]
     Dates: start: 20080828
  7. MUCOSTA [Concomitant]
     Dates: start: 20080828

REACTIONS (1)
  - OSTEONECROSIS [None]
